FAERS Safety Report 8230848-7 (Version None)
Quarter: 2012Q1

REPORT INFORMATION
  Report Type: 
  Country: None (occurrence: None)
  Receive Date: 20120321
  Receipt Date: 20120309
  Transmission Date: 20120608
  Serious: Yes (Death, Other)
  Sender: FDA-Public Use
  Company Number: JPI-P-012948

PATIENT
  Age: 26 Year
  Sex: Male

DRUGS (10)
  1. UNSPECIFIED INHALER [Concomitant]
  2. RISPERIDONE [Concomitant]
  3. TUBERSOL [Concomitant]
  4. XYREM [Suspect]
     Indication: NARCOLEPSY
     Dosage: 4 GM (2 GM, 2 IN 1 D), ORAL, (TITRATING DOSE), ORAL, 12 GM (6 GM, 2 IN 1 D), ORAL, (6 GRAMS PLUS 3 G
     Route: 048
     Dates: start: 20100930
  5. XYREM [Suspect]
     Indication: NARCOLEPSY
     Dosage: 4 GM (2 GM, 2 IN 1 D), ORAL, (TITRATING DOSE), ORAL, 12 GM (6 GM, 2 IN 1 D), ORAL, (6 GRAMS PLUS 3 G
     Route: 048
     Dates: end: 20101107
  6. XYREM [Suspect]
     Indication: NARCOLEPSY
     Dosage: 4 GM (2 GM, 2 IN 1 D), ORAL, (TITRATING DOSE), ORAL, 12 GM (6 GM, 2 IN 1 D), ORAL, (6 GRAMS PLUS 3 G
     Route: 048
     Dates: start: 20081027
  7. SUSTAINED RELEASE METHYLPHENIDATE [Concomitant]
  8. BUPRENORPHINE HCL AND NALOXONE HCL [Suspect]
     Indication: PRODUCT USED FOR UNKNOWN INDICATION
     Dosage: (UNKNOWN), UNKNOWN
  9. ENERGY DRINKS [Concomitant]
  10. PROPRANOLOL [Suspect]

REACTIONS (6)
  - DYSPNOEA [None]
  - DILATATION VENTRICULAR [None]
  - SKIN DISCOLOURATION [None]
  - PALLOR [None]
  - TOXICITY TO VARIOUS AGENTS [None]
  - STATUS ASTHMATICUS [None]
